FAERS Safety Report 5445571-1 (Version None)
Quarter: 2007Q3

REPORT INFORMATION
  Report Type: 
  Country: None (occurrence: None)
  Receive Date: 20070906
  Receipt Date: 20070824
  Transmission Date: 20080115
  Serious: Yes (Hospitalization)
  Sender: FDA-Public Use
  Company Number: CA-GENENTECH-247089

PATIENT
  Age: 88 Year
  Sex: Female

DRUGS (4)
  1. HERCEPTIN [Suspect]
     Indication: BREAST CANCER
     Dosage: 8 MG/KG, UNK
     Route: 042
     Dates: start: 20070824, end: 20070824
  2. MOGADON [Concomitant]
     Indication: DRUG USE FOR UNKNOWN INDICATION
  3. BENADRYL [Concomitant]
     Indication: DRUG USE FOR UNKNOWN INDICATION
     Dates: start: 20070824, end: 20070824
  4. ATASOL [Concomitant]
     Indication: DRUG USE FOR UNKNOWN INDICATION
     Dates: start: 20070824, end: 20070824

REACTIONS (4)
  - DIZZINESS [None]
  - FAECAL INCONTINENCE [None]
  - LOSS OF CONSCIOUSNESS [None]
  - URINARY INCONTINENCE [None]
